FAERS Safety Report 21766270 (Version 1)
Quarter: 2022Q4

REPORT INFORMATION
  Report Type: Spontaneous
  Country: SE (occurrence: SE)
  Receive Date: 20221222
  Receipt Date: 20221222
  Transmission Date: 20230112
  Serious: Yes (Hospitalization)
  Sender: FDA-Public Use
  Company Number: None

PATIENT
  Age: 21 Year
  Sex: Female

DRUGS (6)
  1. DIAZEPAM [Suspect]
     Active Substance: DIAZEPAM
     Indication: Product used for unknown indication
     Dosage: UNIT DOSE :  30 MG  , FREQUENCY TIME :  1 TOTAL
     Dates: start: 20210404, end: 20210404
  2. TRIMEPRAZINE [Suspect]
     Active Substance: TRIMEPRAZINE
     Indication: Product used for unknown indication
     Dosage: HALF BOTTLE , FREQUENCY TIME : 1 TOTAL
     Dates: start: 20210404, end: 20210404
  3. ZOLPIDEM TARTRATE [Suspect]
     Active Substance: ZOLPIDEM TARTRATE
     Indication: Product used for unknown indication
     Dosage: UNIT DOSE : 30 MG   , FREQUENCY TIME : 1 TOTAL
     Dates: start: 20210404, end: 20210404
  4. LISDEXAMFETAMINE DIMESYLATE [Suspect]
     Active Substance: LISDEXAMFETAMINE DIMESYLATE
     Indication: Product used for unknown indication
     Dosage: 3 CAPSULES ELVANSE, UNCLEAR STRENGTH , FREQUENCY TIME : 1 TOTAL
     Dates: start: 20210404, end: 20210404
  5. PROPIOMAZINE [Suspect]
     Active Substance: PROPIOMAZINE
     Indication: Product used for unknown indication
     Dosage: UNIT DOSE : 100 MG   , FREQUENCY TIME :  1 TOTAL
     Dates: start: 20210404, end: 20210404
  6. LEVOMEPROMAZINE [Suspect]
     Active Substance: LEVOMEPROMAZINE
     Indication: Product used for unknown indication
     Dosage: UNIT DOSE : 100 MG   , FREQUENCY TIME :  1 TOTAL
     Dates: start: 20210404, end: 20210404

REACTIONS (2)
  - Intentional self-injury [Unknown]
  - Intentional overdose [Unknown]

NARRATIVE: CASE EVENT DATE: 20210404
